FAERS Safety Report 25159462 (Version 2)
Quarter: 2025Q2

REPORT INFORMATION
  Report Type: Spontaneous
  Country: CA (occurrence: CA)
  Receive Date: 20250404
  Receipt Date: 20250415
  Transmission Date: 20250716
  Serious: Yes (Death, Life-Threatening, Hospitalization, Other)
  Sender: AUROBINDO
  Company Number: CA-MLMSERVICE-20250319-PI446880-00263-2

PATIENT
  Age: 87 Year
  Sex: Female
  Weight: 72.6 kg

DRUGS (2)
  1. PIPERACILLIN SODIUM\TAZOBACTAM SODIUM [Suspect]
     Active Substance: PIPERACILLIN SODIUM\TAZOBACTAM SODIUM
     Indication: Antibiotic therapy
     Dosage: 2.25 MILLIGRAM, 3 TIMES A DAY (APPROPRIATELY DOSED)
     Route: 042
  2. CEFAZOLIN [Suspect]
     Active Substance: CEFAZOLIN
     Indication: Staphylococcal bacteraemia
     Dosage: 2 GRAM, EVERY FOUR HOUR
     Route: 042

REACTIONS (2)
  - Renal failure [Fatal]
  - Blood creatinine increased [Unknown]
